FAERS Safety Report 7686358-9 (Version None)
Quarter: 2011Q3

REPORT INFORMATION
  Report Type: 
  Country: None (occurrence: None)
  Receive Date: 20110816
  Receipt Date: 20110808
  Transmission Date: 20111222
  Serious: Yes (Life-Threatening, Hospitalization)
  Sender: FDA-Public Use
  Company Number: JP-GLAXOSMITHKLINE-B0733252A

PATIENT
  Sex: Male

DRUGS (4)
  1. TEGRETOL [Concomitant]
     Dosage: 300MG PER DAY
     Route: 048
     Dates: start: 20080625
  2. DEPAKENE [Concomitant]
     Dosage: 1800MG PER DAY
     Route: 048
     Dates: start: 20080625
  3. CLONAZEPAM [Concomitant]
     Dosage: 1MG PER DAY
     Route: 048
     Dates: start: 20080625
  4. LAMICTAL [Suspect]
     Indication: EPILEPSY
     Dosage: 25MG PER DAY
     Route: 048
     Dates: start: 20090117

REACTIONS (1)
  - GUILLAIN-BARRE SYNDROME [None]
